FAERS Safety Report 25665825 (Version 1)
Quarter: 2025Q3

REPORT INFORMATION
  Report Type: Spontaneous
  Country: US (occurrence: None)
  Receive Date: 20250811
  Receipt Date: 20250811
  Transmission Date: 20251021
  Serious: Yes (Death)
  Sender: FDA-CTU
  Company Number: None

PATIENT
  Age: 18 Year
  Sex: Female

DRUGS (2)
  1. MIFEPRISTONE [Suspect]
     Active Substance: MIFEPRISTONE
     Indication: Abortion induced
     Route: 048
     Dates: start: 20250617, end: 20250617
  2. MISOPROSTOL [Suspect]
     Active Substance: MISOPROSTOL
     Indication: Abortion induced
     Route: 067
     Dates: start: 20250617, end: 20250617

REACTIONS (7)
  - Exposure during pregnancy [None]
  - Uterine dilation and curettage [None]
  - Clostridial infection [None]
  - Disseminated intravascular coagulation [None]
  - Acute respiratory distress syndrome [None]
  - Septic shock [None]
  - Intrauterine infection [None]

NARRATIVE: CASE EVENT DATE: 20250622
